FAERS Safety Report 11840729 (Version 1)
Quarter: 2015Q4

REPORT INFORMATION
  Report Type: Report from Study
  Country: HU (occurrence: HU)
  Receive Date: 20151216
  Receipt Date: 20151216
  Transmission Date: 20160305
  Serious: Yes (Hospitalization)
  Sender: FDA-Public Use
  Company Number: HU-TEVA-616844ISR

PATIENT
  Age: 33 Year
  Sex: Female
  Weight: 61 kg

DRUGS (13)
  1. METILPREDNISOLONE [Concomitant]
     Active Substance: METHYLPREDNISOLONE
     Indication: PREMEDICATION
     Dosage: BEFORE CHEMOTHERAPY
     Route: 048
     Dates: start: 20150802
  2. SUPRASTIN [Concomitant]
     Active Substance: CHLOROPYRAMINE HYDROCHLORIDE
     Indication: PREMEDICATION
     Dosage: BEFORE CHEMOTHERAPY, (1 MG,AS REQUIRED)
     Route: 042
     Dates: start: 20150803
  3. QUAMATEL [Concomitant]
     Active Substance: FAMOTIDINE
     Indication: PREMEDICATION
     Dosage: BEFORE CHEMOTHERAPY, (20 MG,AS REQUIRED)
     Route: 042
     Dates: start: 20150803
  4. PACLITAXEL. [Suspect]
     Active Substance: PACLITAXEL
     Dosage: OPEN LABEL, DAY 1 OF 12 WEEKLY CYCLES DURING CHEMOTHERAPY SEGMENT 1 (70 MG/M2, L IN 1 WK)
     Route: 042
     Dates: start: 20151012, end: 20151021
  5. ABT-888 [Suspect]
     Active Substance: VELIPARIB
     Indication: TRIPLE NEGATIVE BREAST CANCER
     Dosage: BLINDED, CHEMOTHERAPY SEGMENT 1 (2 IN 1 D)
     Route: 048
     Dates: start: 20150803, end: 20151025
  6. CARBOPLATIN. [Suspect]
     Active Substance: CARBOPLATIN
     Dosage: BLINDED, AUC 5; DAY 1 OF FOUR 21-DAY CYCLES DURING CHEMOTHERAPY SEGMENT 1 (1 IN 21 D)
     Route: 042
     Dates: start: 20150831, end: 20150921
  7. CARBOPLATIN. [Suspect]
     Active Substance: CARBOPLATIN
     Dosage: BLINDED, AUC 4; DAY 1 OF FOUR 21-DAY CYCLES DURING CHEMOTHERAPY SEGMENT 1 (1 IN 21 D)
     Route: 042
     Dates: start: 20151012, end: 20151012
  8. CARBOPLATIN. [Suspect]
     Active Substance: CARBOPLATIN
     Indication: TRIPLE NEGATIVE BREAST CANCER
     Dosage: BLINDED, AUC 6; DAY 1 OF FOUR 21-DAY CYCLES DURING CHEMOTHERAPY SEGMENT 1 (1 IN 21 D)
     Route: 042
     Dates: start: 20150803, end: 20150803
  9. DOXORUBICIN [Suspect]
     Active Substance: DOXORUBICIN
     Indication: TRIPLE NEGATIVE BREAST CANCER
     Dosage: OPEN LABEL, CHEMOTHERAPY SEGMENT 2 (60 MG/M2, 1 IN 3 WK)
     Route: 042
     Dates: start: 20151028
  10. CYCLOPHOSPHAMIDE. [Suspect]
     Active Substance: CYCLOPHOSPHAMIDE
     Indication: TRIPLE NEGATIVE BREAST CANCER
     Dosage: OPEN LABEL, CHEMOTHERAPY SEGMENT 2 (600 MG/M2, 1 IN 3 WK)
     Route: 042
     Dates: start: 20151028
  11. CONTROLOC [Concomitant]
     Active Substance: PANTOPRAZOLE SODIUM
     Indication: GASTROOESOPHAGEAL REFLUX DISEASE
     Dosage: 20 MG, AS REQUIRED
     Route: 048
     Dates: start: 20150806
  12. ORADEXON [Concomitant]
     Active Substance: DEXAMETHASONE
     Indication: PREMEDICATION
     Dosage: BEFORE CHEMOTHERAPY
     Route: 042
     Dates: start: 20150803
  13. PACLITAXEL. [Suspect]
     Active Substance: PACLITAXEL
     Indication: TRIPLE NEGATIVE BREAST CANCER
     Dosage: DAY 1 OF 12 WEEKLY CYCLES DURING CHEMOTHERAPY SEGMENT 1 (80 MG/M2,L IN 1 WK)
     Route: 042
     Dates: start: 20150803, end: 20151005

REACTIONS (2)
  - Febrile neutropenia [Recovered/Resolved]
  - Anaemia [Unknown]

NARRATIVE: CASE EVENT DATE: 20151109
